FAERS Safety Report 21157660 (Version 1)
Quarter: 2022Q3

REPORT INFORMATION
  Report Type: Spontaneous
  Country: US (occurrence: None)
  Receive Date: 20220731
  Receipt Date: 20220731
  Transmission Date: 20221026
  Serious: Yes (Other)
  Sender: FDA-Public Use
  Company Number: None

PATIENT
  Age: 29 Year
  Sex: Male
  Weight: 74.25 kg

DRUGS (4)
  1. DEXTROAMPHET SACCHARAT, AMPHET ASPARTATE, DEXTROAMPHET SULFATE AND AMP [Suspect]
     Active Substance: AMPHETAMINE ASPARTATE\AMPHETAMINE SULFATE\DEXTROAMPHETAMINE SACCHARATE\DEXTROAMPHETAMINE SULFATE
     Indication: Attention deficit hyperactivity disorder
     Dosage: OTHER QUANTITY : 90 TABLET(S);?FREQUENCY : 3 TIMES A DAY;?
     Route: 048
     Dates: start: 20220730, end: 20220731
  2. REMERON [Concomitant]
     Active Substance: MIRTAZAPINE
  3. LEXAPRO [Concomitant]
     Active Substance: ESCITALOPRAM OXALATE
  4. ADVAIR HFA [Concomitant]
     Active Substance: FLUTICASONE PROPIONATE\SALMETEROL XINAFOATE

REACTIONS (9)
  - Drug ineffective [None]
  - Condition aggravated [None]
  - Migraine [None]
  - Feeling abnormal [None]
  - Irritability [None]
  - Depression [None]
  - Insomnia [None]
  - Fatigue [None]
  - Product substitution issue [None]

NARRATIVE: CASE EVENT DATE: 20220731
